FAERS Safety Report 7840115-9 (Version None)
Quarter: 2011Q4

REPORT INFORMATION
  Report Type: 
  Country: None (occurrence: None)
  Receive Date: 20111025
  Receipt Date: 20111014
  Transmission Date: 20120403
  Serious: Yes (Hospitalization)
  Sender: FDA-Public Use
  Company Number: US-RANBAXY-2011US-48647

PATIENT

DRUGS (2)
  1. ISOPTIN SR [Suspect]
     Indication: ATRIAL FIBRILLATION
     Dosage: 240MG, QD
     Route: 048
     Dates: start: 19960906, end: 20110906
  2. DIGOXIN [Suspect]
     Indication: ATRIAL FIBRILLATION
     Dosage: 0.125MG, QD
     Route: 048
     Dates: start: 19960906, end: 20110906

REACTIONS (1)
  - NODAL ARRHYTHMIA [None]
